FAERS Safety Report 5450659-5 (Version None)
Quarter: 2007Q3

REPORT INFORMATION
  Report Type: 
  Country: None (occurrence: None)
  Receive Date: 20070910
  Receipt Date: 20070824
  Transmission Date: 20080115
  Serious: Yes (Death)
  Sender: FDA-Public Use
  Company Number: ENC200700149

PATIENT

DRUGS (2)
  1. ARGATROBAN [Suspect]
     Indication: HEPARIN-INDUCED THROMBOCYTOPENIA
     Dosage: INTRAVENOUS
     Route: 042
  2. LEPIRUDIN(LEPIRUDIN) [Suspect]

REACTIONS (1)
  - RENAL IMPAIRMENT [None]
